FAERS Safety Report 9761373 (Version 1)
Quarter: 2013Q4

REPORT INFORMATION
  Report Type: Spontaneous
  Country: US (occurrence: US)
  Receive Date: 20131216
  Receipt Date: 20131216
  Transmission Date: 20140711
  Serious: No
  Sender: FDA-Public Use
  Company Number: US-PFIZER INC-2013354211

PATIENT
  Age: 74 Year
  Sex: Male
  Weight: 141 kg

DRUGS (2)
  1. ADVIL [Suspect]
     Indication: PAIN
     Dosage: 200 MG, TWO TIMES A DAY
     Route: 048
     Dates: start: 201311, end: 20131208
  2. INSULIN [Concomitant]
     Dosage: UNK

REACTIONS (2)
  - Drug dispensing error [Unknown]
  - Drug ineffective [Unknown]
